FAERS Safety Report 8849498 (Version 1)
Quarter: 2012Q4

REPORT INFORMATION
  Report Type: Spontaneous
  Country: US (occurrence: None)
  Receive Date: 20121018
  Receipt Date: 20121018
  Transmission Date: 20130627
  Serious: Yes (Hospitalization)
  Sender: FDA-Public Use
  Company Number: None

PATIENT
  Age: 65 Year
  Sex: Female
  Weight: 72.58 kg

DRUGS (14)
  1. AGGRENOX [Suspect]
     Indication: STROKE
     Dosage: po
     Route: 048
     Dates: start: 20110313, end: 20110314
  2. TOPAMAX [Suspect]
     Indication: PSYCHOTIC DISORDER
     Dosage: bid po
     Route: 048
     Dates: start: 19990101, end: 20121017
  3. LATUDA [Concomitant]
  4. RISPERADOL [Concomitant]
  5. TOPAMAX [Concomitant]
  6. BUPROPION [Concomitant]
  7. CALCIUM [Concomitant]
  8. SERAVITE [Concomitant]
  9. LIPITOR [Concomitant]
  10. EVISTA [Concomitant]
  11. LODINE [Concomitant]
  12. TRAMADOL [Concomitant]
  13. VICODIN [Concomitant]
  14. TIZINADINE [Concomitant]

REACTIONS (4)
  - Mental disorder [None]
  - Thought blocking [None]
  - Drug ineffective [None]
  - Dementia [None]
